FAERS Safety Report 6093009-6 (Version None)
Quarter: 2009Q1

REPORT INFORMATION
  Report Type: 
  Country: None (occurrence: None)
  Receive Date: 20090224
  Receipt Date: 20080519
  Transmission Date: 20090719
  Serious: Yes (Death)
  Sender: FDA-Public Use
  Company Number: 2008-0003

PATIENT
  Age: 19 Year
  Sex: Female

DRUGS (1)
  1. PROZAC [Suspect]

REACTIONS (4)
  - COMPLETED SUICIDE [None]
  - FEELING ABNORMAL [None]
  - MUSCLE TWITCHING [None]
  - NIGHTMARE [None]
